FAERS Safety Report 4426171-9 (Version None)
Quarter: 2004Q3

REPORT INFORMATION
  Report Type: 
  Country: None (occurrence: None)
  Receive Date: 20040811
  Receipt Date: 20040803
  Transmission Date: 20050211
  Serious: Yes (Other)
  Sender: FDA-Public Use
  Company Number: 200412253BCC

PATIENT
  Age: 72 Year
  Sex: Male
  Weight: 102.0593 kg

DRUGS (2)
  1. ALKA-SELTZER PLUS COLD EFFERVESCENT TABLET [Suspect]
     Indication: NASOPHARYNGITIS
     Dosage: Q2HR
     Dates: start: 20040430, end: 20040502
  2. ALKA-SELTZER PLUS LIGUID GELS [Suspect]
     Indication: NASOPHARYNGITIS
     Dosage: QID
     Dates: start: 20040430, end: 20040502

REACTIONS (10)
  - ANOREXIA [None]
  - ASTHENIA [None]
  - BREATH ODOUR [None]
  - DYSGEUSIA [None]
  - FEELING ABNORMAL [None]
  - HYPERTENSION [None]
  - NAUSEA [None]
  - OVERDOSE [None]
  - PAROSMIA [None]
  - PNEUMONIA [None]
